FAERS Safety Report 9883549 (Version 1)
Quarter: 2014Q1

REPORT INFORMATION
  Report Type: Spontaneous
  Country: US (occurrence: US)
  Receive Date: 20140210
  Receipt Date: 20140210
  Transmission Date: 20141002
  Serious: Yes (Hospitalization)
  Sender: FDA-Public Use
  Company Number: US-BIOGENIDEC-2014BI012455

PATIENT
  Age: 56 Year
  Sex: Female

DRUGS (21)
  1. TECFIDERA [Suspect]
     Indication: MULTIPLE SCLEROSIS
     Route: 048
     Dates: start: 201309
  2. XANAX [Concomitant]
  3. LITHIUM CARBONATE [Concomitant]
  4. DILANTIN [Concomitant]
  5. AMPYRA [Concomitant]
  6. OXYBUTYNIN CHLORIDE [Concomitant]
  7. CLEBREX [Concomitant]
  8. LEVOTHYROXINE SODIUM [Concomitant]
  9. ZOFRAN [Concomitant]
  10. ASPIRIN [Concomitant]
  11. ARICEPT [Concomitant]
  12. BONIVA [Concomitant]
  13. SEROQUEL [Concomitant]
  14. KLOR-CON M20 [Concomitant]
  15. LIDOCAINE [Concomitant]
     Route: 061
  16. VOLTAREN [Concomitant]
     Route: 061
  17. PRAVACHOL [Concomitant]
  18. VITAMIN D [Concomitant]
  19. SOLU-MEDROL [Concomitant]
  20. PREDNISONE [Concomitant]
  21. DURAGESIC [Concomitant]

REACTIONS (8)
  - Toxicity to various agents [Unknown]
  - Multiple sclerosis relapse [Unknown]
  - Intervertebral disc protrusion [Unknown]
  - Spinal cord disorder [Unknown]
  - Spinal osteoarthritis [Unknown]
  - Pain [Unknown]
  - Fall [Recovered/Resolved]
  - Pelvic fracture [Unknown]
